FAERS Safety Report 25097444 (Version 1)
Quarter: 2025Q1

REPORT INFORMATION
  Report Type: Spontaneous
  Country: US (occurrence: US)
  Receive Date: 20250320
  Receipt Date: 20250320
  Transmission Date: 20250409
  Serious: Yes (Other)
  Sender: JOHNSON AND JOHNSON
  Company Number: US-JNJFOC-20250346576

PATIENT

DRUGS (2)
  1. TOPAMAX [Suspect]
     Active Substance: TOPIRAMATE
     Indication: Cluster headache
     Route: 048
     Dates: start: 202502
  2. TOPAMAX [Suspect]
     Active Substance: TOPIRAMATE
     Route: 048
     Dates: start: 202502

REACTIONS (1)
  - Partial seizures [Unknown]
